FAERS Safety Report 8957295 (Version 1)
Quarter: 2012Q4

REPORT INFORMATION
  Report Type: Spontaneous
  Country: US (occurrence: None)
  Receive Date: 20121128
  Receipt Date: 20121128
  Transmission Date: 20130627
  Serious: Yes (Hospitalization)
  Sender: FDA-Public Use
  Company Number: DSA_60998_2012

PATIENT
  Age: 9 Month
  Sex: Female
  Weight: 9.8 kg

DRUGS (1)
  1. DILTIAZEM [Suspect]
     Indication: PRODUCT USED FOR UNKNOWN INDICATION
     Dosage: (Once; Unknown amount)

REACTIONS (4)
  - Atrioventricular block complete [None]
  - Accidental exposure to product [None]
  - Vomiting [None]
  - Heart rate decreased [None]
